FAERS Safety Report 20958098 (Version 2)
Quarter: 2024Q3

REPORT INFORMATION
  Report Type: Spontaneous
  Country: US (occurrence: US)
  Receive Date: 20220614
  Receipt Date: 20240710
  Transmission Date: 20241017
  Serious: No
  Sender: PIERRE FABRE MEDICAMENT
  Company Number: US-PFM-2021-05524

PATIENT
  Age: 7 Year
  Sex: Male
  Weight: 26 kg

DRUGS (4)
  1. PROPRANOLOL [Suspect]
     Active Substance: PROPRANOLOL HYDROCHLORIDE
     Indication: Long QT syndrome congenital
     Dosage: UNK
     Route: 065
  2. PROPRANOLOL [Suspect]
     Active Substance: PROPRANOLOL HYDROCHLORIDE
     Indication: Off label use
  3. MIDAZOLAM [Concomitant]
     Active Substance: MIDAZOLAM
     Indication: Anxiolytic therapy
     Dosage: UNK
     Route: 048
  4. MAGNESIUM SULFATE [Concomitant]
     Active Substance: MAGNESIUM SULFATE\MAGNESIUM SULFATE HEPTAHYDRATE
     Indication: Product used for unknown indication
     Dosage: 30 MG/KG, UNK
     Route: 042

REACTIONS (2)
  - Product use issue [Unknown]
  - Off label use [Unknown]
